FAERS Safety Report 25577319 (Version 1)
Quarter: 2025Q3

REPORT INFORMATION
  Report Type: Spontaneous
  Country: EU (occurrence: EU)
  Receive Date: 20250718
  Receipt Date: 20250718
  Transmission Date: 20251021
  Serious: Yes (Hospitalization)
  Sender: ABBVIE
  Company Number: None

PATIENT
  Age: 60 Year
  Sex: Male
  Weight: 85 kg

DRUGS (1)
  1. FOSCARBIDOPA\FOSLEVODOPA [Suspect]
     Active Substance: FOSCARBIDOPA\FOSLEVODOPA
     Indication: Parkinson^s disease
     Dosage: 240 MG/ML + 12 MG/ML?CONTINUOUS INFUSION DOSE RATE: 0,5  ML/H?LOW ALTERNATING INFUSION RATE: 0,4 ...
     Route: 058
     Dates: start: 20250317

REACTIONS (5)
  - Dysuria [Not Recovered/Not Resolved]
  - Dyskinesia [Recovered/Resolved]
  - Constipation [Not Recovered/Not Resolved]
  - Impulse-control disorder [Recovered/Resolved]
  - Hallucination [Recovered/Resolved]

NARRATIVE: CASE EVENT DATE: 20250320
